FAERS Safety Report 6894626-3 (Version None)
Quarter: 2010Q3

REPORT INFORMATION
  Report Type: 
  Country: None (occurrence: None)
  Receive Date: 20100802
  Receipt Date: 20100721
  Transmission Date: 20110219
  Serious: Yes (Other)
  Sender: FDA-Public Use
  Company Number: PHFR2010GB01482

PATIENT
  Sex: Female

DRUGS (2)
  1. CLOZARIL [Suspect]
     Indication: SCHIZOPHRENIA
     Dosage: UNK
     Route: 048
     Dates: start: 20100618
  2. CLOZARIL [Suspect]
     Dosage: 50 MG MORNING + 150 MG NIGHT
     Route: 048

REACTIONS (3)
  - BALANCE DISORDER [None]
  - DIZZINESS [None]
  - HYPOTENSION [None]
